FAERS Safety Report 10501398 (Version 1)
Quarter: 2014Q4

REPORT INFORMATION
  Report Type: Spontaneous
  Country: US (occurrence: None)
  Receive Date: 20141006
  Receipt Date: 20141006
  Transmission Date: 20150528
  Serious: Yes (Other)
  Sender: FDA-Public Use
  Company Number: None

PATIENT
  Age: 42 Year
  Sex: Female
  Weight: 61.24 kg

DRUGS (1)
  1. SOLU-MEDROL [Suspect]
     Active Substance: METHYLPREDNISOLONE SODIUM SUCCINATE
     Indication: ASTHMA
     Dosage: 1 INJECTION ONCE INTO THE MUSCLE
     Route: 030
     Dates: start: 20141004, end: 20141004

REACTIONS (13)
  - Pain in extremity [None]
  - Head injury [None]
  - Hypoaesthesia [None]
  - Thirst [None]
  - Pain [None]
  - Photopsia [None]
  - Dizziness [None]
  - Visual impairment [None]
  - Loss of consciousness [None]
  - Disorientation [None]
  - Hyperhidrosis [None]
  - Hot flush [None]
  - Asthenia [None]

NARRATIVE: CASE EVENT DATE: 20141004
